FAERS Safety Report 25594351 (Version 1)
Quarter: 2025Q3

REPORT INFORMATION
  Report Type: Report from Study
  Country: CA (occurrence: CA)
  Receive Date: 20250723
  Receipt Date: 20250723
  Transmission Date: 20251020
  Serious: Yes (Hospitalization)
  Sender: CELLTRION
  Company Number: CA-CELLTRION INC.-2025CA024105

PATIENT

DRUGS (1)
  1. ADALIMUMAB [Suspect]
     Active Substance: ADALIMUMAB
     Indication: Crohn^s disease
     Dosage: 40.0 MILLIGRAM 1 EVERU 2 WEEKS

REACTIONS (5)
  - Accident [Recovered/Resolved]
  - Fall [Recovered/Resolved]
  - Fracture [Recovered/Resolved]
  - Skin reaction [Recovered/Resolved]
  - Hypersensitivity [Recovered/Resolved]
